FAERS Safety Report 10164494 (Version 1)
Quarter: 2014Q2

REPORT INFORMATION
  Report Type: Spontaneous
  Country: US (occurrence: US)
  Receive Date: 20140510
  Receipt Date: 20140510
  Transmission Date: 20141212
  Serious: No
  Sender: FDA-Public Use
  Company Number: US-BRISTOL-MYERS SQUIBB COMPANY-20071833

PATIENT
  Age: 38 Year
  Sex: Female
  Weight: 123.35 kg

DRUGS (2)
  1. BYDUREON [Suspect]
     Indication: BLOOD GLUCOSE ABNORMAL
     Route: 058
     Dates: start: 20131206
  2. BYDUREON [Suspect]
     Indication: METABOLIC SYNDROME
     Route: 058
     Dates: start: 20131206

REACTIONS (1)
  - Alopecia [Unknown]
